FAERS Safety Report 20020679 (Version 1)
Quarter: 2021Q4

REPORT INFORMATION
  Report Type: Spontaneous
  Country: BE (occurrence: None)
  Receive Date: 20211101
  Receipt Date: 20211101
  Transmission Date: 20220303
  Serious: Yes (Other)
  Sender: FDA-Public Use
  Company Number: 2021A781979

PATIENT
  Age: 60 Year
  Sex: Male

DRUGS (1)
  1. OLAPARIB [Suspect]
     Active Substance: OLAPARIB
     Indication: Ductal adenocarcinoma of pancreas
     Route: 048
     Dates: start: 202007

REACTIONS (2)
  - Metastases to skin [Unknown]
  - Drug resistance [Unknown]
